FAERS Safety Report 8074957-4 (Version None)
Quarter: 2012Q1

REPORT INFORMATION
  Report Type: 
  Country: None (occurrence: None)
  Receive Date: 20120127
  Receipt Date: 20120118
  Transmission Date: 20120608
  Serious: No
  Sender: FDA-Public Use
  Company Number: ES-BIOGENIDEC-2011BI048047

PATIENT
  Age: 33 Year
  Sex: Female

DRUGS (3)
  1. TYSABRI [Suspect]
     Indication: MULTIPLE SCLEROSIS
     Route: 042
     Dates: start: 20081014, end: 20100427
  2. PRENATAL SUPPLEMENT [Concomitant]
  3. FERROUS SULFATE TAB [Concomitant]

REACTIONS (1)
  - PREGNANCY [None]
